FAERS Safety Report 13972681 (Version 2)
Quarter: 2017Q4

REPORT INFORMATION
  Report Type: Report from Study
  Country: US (occurrence: US)
  Receive Date: 20170914
  Receipt Date: 20171117
  Transmission Date: 20180321
  Serious: Yes (Death, Other)
  Sender: FDA-Public Use
  Company Number: US-ASTELLAS-2016US049697

PATIENT
  Age: 85 Year
  Sex: Male

DRUGS (1)
  1. ENZALUTAMIDE [Suspect]
     Active Substance: ENZALUTAMIDE
     Indication: HORMONE-REFRACTORY PROSTATE CANCER
     Route: 048
     Dates: start: 201611

REACTIONS (10)
  - Death [Fatal]
  - Peripheral swelling [Unknown]
  - Fatigue [Unknown]
  - Dyspnoea [Unknown]
  - Abdominal distension [Unknown]
  - Vertigo [Unknown]
  - Decreased appetite [Unknown]
  - Nausea [Unknown]
  - Malignant neoplasm progression [Unknown]
  - Dizziness [Unknown]

NARRATIVE: CASE EVENT DATE: 201611
